FAERS Safety Report 9412925 (Version 1)
Quarter: 2013Q3

REPORT INFORMATION
  Report Type: Spontaneous
  Country: CH (occurrence: CH)
  Receive Date: 20130722
  Receipt Date: 20130722
  Transmission Date: 20140515
  Serious: Yes (Life-Threatening)
  Sender: FDA-Public Use
  Company Number: CH-BAYER-2013-087797

PATIENT
  Age: 50 Year
  Sex: Female
  Weight: 92 kg

DRUGS (5)
  1. ULTRAVIST [Suspect]
     Indication: COMPUTERISED TOMOGRAM
     Dosage: 90 ML, ONCE
     Route: 042
     Dates: start: 20130718, end: 20130718
  2. CEFUROXIM [Concomitant]
     Dosage: 500 MG, BID
  3. BUSCOPAN [Concomitant]
     Dosage: 10 MG, PRN
  4. TRAMADOL [Concomitant]
     Dosage: 10 MG, PRN
  5. TRITTICO [Concomitant]
     Dosage: 100 MG, QD

REACTIONS (5)
  - Dyspnoea [Recovering/Resolving]
  - Cough [Recovering/Resolving]
  - Tachypnoea [Recovering/Resolving]
  - Tachycardia [Recovering/Resolving]
  - Hypertension [Recovering/Resolving]
